FAERS Safety Report 10495130 (Version 1)
Quarter: 2014Q4

REPORT INFORMATION
  Report Type: Spontaneous
  Country: FR (occurrence: FR)
  Receive Date: 20141003
  Receipt Date: 20141003
  Transmission Date: 20150528
  Serious: Yes (Hospitalization)
  Sender: FDA-Public Use
  Company Number: FR-IPSEN BIOPHARMACEUTICALS, INC.-2014-5179

PATIENT
  Age: 60 Year
  Sex: Female

DRUGS (11)
  1. ALDACTONE [Concomitant]
     Active Substance: SPIRONOLACTONE
     Indication: PRODUCT USED FOR UNKNOWN INDICATION
     Route: 048
  2. PARACETAMOL [Concomitant]
     Active Substance: ACETAMINOPHEN
     Route: 048
  3. TANGANIL [Concomitant]
     Active Substance: ACETYLLEUCINE
     Indication: VERTIGO
     Dosage: NOT REPORTED
     Route: 048
     Dates: end: 20140510
  4. PARACETAMOL [Concomitant]
     Active Substance: ACETAMINOPHEN
     Indication: HEADACHE
     Dosage: NOT REPORTED
     Route: 048
     Dates: end: 20140510
  5. SOMATULINE L.P. [Suspect]
     Active Substance: LANREOTIDE ACETATE
     Dosage: NOT REPORTED
     Route: 058
     Dates: start: 2014
  6. AFINITOR [Suspect]
     Active Substance: EVEROLIMUS
     Indication: NEUROENDOCRINE TUMOUR
     Route: 048
     Dates: start: 20140429, end: 20140510
  7. ESOMEPRAZOLE [Suspect]
     Active Substance: ESOMEPRAZOLE
     Indication: PRODUCT USED FOR UNKNOWN INDICATION
     Dosage: NOT REPORTED
     Route: 048
     Dates: end: 20140510
  8. TANGANIL [Concomitant]
     Active Substance: ACETYLLEUCINE
     Route: 048
  9. PRIMPERAN [Concomitant]
     Active Substance: METOCLOPRAMIDE HYDROCHLORIDE
     Indication: NAUSEA
     Dosage: NOT REPORTED
     Route: 048
     Dates: end: 20140510
  10. SOMATULINE L.P. [Suspect]
     Active Substance: LANREOTIDE ACETATE
     Indication: NEUROENDOCRINE TUMOUR
     Dosage: NOT REPORTED
     Route: 058
     Dates: start: 201303, end: 20140510
  11. PRIMPERAN [Concomitant]
     Active Substance: METOCLOPRAMIDE HYDROCHLORIDE
     Route: 048

REACTIONS (3)
  - Thrombocytopenia [Recovering/Resolving]
  - Anaemia [Recovering/Resolving]
  - Leukopenia [Recovering/Resolving]

NARRATIVE: CASE EVENT DATE: 201405
